FAERS Safety Report 11642890 (Version 3)
Quarter: 2018Q3

REPORT INFORMATION
  Report Type: Report from Study
  Country: CA (occurrence: CA)
  Receive Date: 20151020
  Receipt Date: 20180710
  Transmission Date: 20181010
  Serious: Yes (Other)
  Sender: FDA-Public Use
  Company Number: CA-ROCHE-1648174

PATIENT
  Age: 61 Year
  Sex: Male
  Weight: 95.2 kg

DRUGS (8)
  1. LYRICA [Concomitant]
     Active Substance: PREGABALIN
  2. OSCAL (CALCIUM CARBONATE) [Concomitant]
  3. MONOCOR [Concomitant]
     Active Substance: BISOPROLOL FUMARATE
  4. NORVASC [Concomitant]
     Active Substance: AMLODIPINE BESYLATE
  5. RITUXAN [Suspect]
     Active Substance: RITUXIMAB
     Indication: VASCULITIS
     Dosage: 10/JAN/2018, RECENT DOSE
     Route: 042
     Dates: start: 20150917
  6. PREDNISONE. [Concomitant]
     Active Substance: PREDNISONE
  7. PANTOLOC [Concomitant]
     Active Substance: PANTOPRAZOLE SODIUM
  8. INSULINE [Concomitant]
     Active Substance: INSULIN NOS

REACTIONS (2)
  - Platelet count decreased [Not Recovered/Not Resolved]
  - Blood pressure increased [Unknown]

NARRATIVE: CASE EVENT DATE: 20180705
